FAERS Safety Report 18928234 (Version 1)
Quarter: 2021Q1

REPORT INFORMATION
  Report Type: Report from Study
  Country: US (occurrence: US)
  Receive Date: 20210223
  Receipt Date: 20210223
  Transmission Date: 20210420
  Serious: Yes (Death, Other)
  Sender: FDA-Public Use
  Company Number: US-SUN PHARMACEUTICAL INDUSTRIES LTD-2021R1-281061

PATIENT
  Age: 47 Year
  Sex: Female

DRUGS (1)
  1. DOXEPIN [Suspect]
     Active Substance: DOXEPIN
     Indication: PRODUCT USED FOR UNKNOWN INDICATION
     Route: 065

REACTIONS (15)
  - Hyperthermia [Fatal]
  - Rhabdomyolysis [Fatal]
  - Electrocardiogram QRS complex prolonged [Fatal]
  - Leukocytosis [Fatal]
  - Hypotension [Fatal]
  - Coagulopathy [Fatal]
  - Tachycardia [Fatal]
  - Bradypnoea [Fatal]
  - Ischaemia [Fatal]
  - Acute kidney injury [Fatal]
  - Respiratory depression [Fatal]
  - Metabolic acidosis [Fatal]
  - Haemolysis [Fatal]
  - Depressed level of consciousness [Fatal]
  - Arrhythmia [Fatal]
